FAERS Safety Report 20430806 (Version 2)
Quarter: 2022Q1

REPORT INFORMATION
  Report Type: Report from Study
  Country: US (occurrence: US)
  Receive Date: 20220204
  Receipt Date: 20220217
  Transmission Date: 20220423
  Serious: No
  Sender: FDA-Public Use
  Company Number: US-KYOWAKIRIN-2022BKK000972

PATIENT

DRUGS (1)
  1. CRYSVITA [Suspect]
     Active Substance: BUROSUMAB-TWZA
     Indication: Hypophosphataemic osteomalacia
     Dosage: 40 MG, 1X/4 WEEKS
     Route: 058
     Dates: start: 20210511

REACTIONS (4)
  - Anxiety [Unknown]
  - Depression [Unknown]
  - Gait disturbance [Unknown]
  - Arthralgia [Unknown]
